FAERS Safety Report 4349349-1 (Version None)
Quarter: 2004Q2

REPORT INFORMATION
  Report Type: 
  Country: None (occurrence: None)
  Receive Date: 20040428
  Receipt Date: 20040202
  Transmission Date: 20050107
  Serious: Yes (Other)
  Sender: FDA-Public Use
  Company Number: PHNU2004DE00759

PATIENT
  Sex: Male

DRUGS (3)
  1. CLOZARIL [Suspect]
     Dosage: 100 TO 150 MG/DAY
     Route: 048
     Dates: start: 19840101, end: 20010701
  2. ANTIDEPRESSANTS [Concomitant]
     Dosage: UNKNOWN
     Route: 065
     Dates: start: 20010101, end: 20020101
  3. HYPNOTICS AND SEDATIVES [Concomitant]
     Dosage: UNKNOWN
     Route: 065
     Dates: start: 20010101

REACTIONS (6)
  - DRUG WITHDRAWAL SYNDROME [None]
  - HYPERHIDROSIS [None]
  - MEMORY IMPAIRMENT [None]
  - POLYNEUROPATHY [None]
  - SENSORY DISTURBANCE [None]
  - TREMOR [None]
